FAERS Safety Report 25604056 (Version 2)
Quarter: 2025Q3

REPORT INFORMATION
  Report Type: Spontaneous
  Country: US (occurrence: US)
  Receive Date: 20250725
  Receipt Date: 20250926
  Transmission Date: 20251020
  Serious: Yes (Other)
  Sender: GLAXOSMITHKLINE
  Company Number: US-GLAXOSMITHKLINE INC-US2025AMR094280

PATIENT
  Sex: Female
  Weight: 55 kg

DRUGS (1)
  1. NUCALA [Suspect]
     Active Substance: MEPOLIZUMAB
     Indication: Asthma
     Dosage: 100 MG, Q4W

REACTIONS (5)
  - Pulmonary oedema [Unknown]
  - Oral pain [Unknown]
  - Dry mouth [Unknown]
  - Candida infection [Unknown]
  - Product dose omission issue [Unknown]
